FAERS Safety Report 8943753 (Version 1)
Quarter: 2012Q4

REPORT INFORMATION
  Report Type: 
  Country: US (occurrence: US)
  Receive Date: 20121204
  Receipt Date: 20121204
  Transmission Date: 20130627
  Serious: Yes (Hospitalization)
  Sender: FDA-Public Use
  Company Number: US-JNJFOC-20121113652

PATIENT
  Sex: Male
  Weight: 81.65 kg

DRUGS (12)
  1. SANDOZ FENTANYL TRANSDERMAL SYSTEM [Suspect]
     Indication: INTERMITTENT CLAUDICATION
     Route: 062
     Dates: start: 201207
  2. SANDOZ FENTANYL TRANSDERMAL SYSTEM [Suspect]
     Indication: INTERMITTENT CLAUDICATION
     Route: 062
     Dates: start: 2009, end: 201207
  3. SANDOZ FENTANYL TRANSDERMAL SYSTEM [Suspect]
     Indication: NEUROPATHY PERIPHERAL
     Route: 062
     Dates: start: 201207
  4. SANDOZ FENTANYL TRANSDERMAL SYSTEM [Suspect]
     Indication: NEUROPATHY PERIPHERAL
     Route: 062
     Dates: start: 2009, end: 201207
  5. TOPROL XL [Concomitant]
     Indication: BLOOD PRESSURE
     Route: 048
     Dates: start: 2001
  6. PERCOCET [Concomitant]
     Indication: PAIN
     Dosage: 5 mg/ 325 mg
     Route: 048
     Dates: start: 2009
  7. HYDROCHLOROTHIAZIDE [Concomitant]
     Indication: FLUID RETENTION
     Dosage: 5 MG/ 325 mg
     Route: 048
     Dates: start: 2009
  8. HYDROCHLOROTHIAZIDE [Concomitant]
     Indication: BLOOD PRESSURE
     Dosage: 5 MG/ 325 mg
     Route: 048
     Dates: start: 2009
  9. PLAVIX [Concomitant]
     Indication: ARTERIOSCLEROSIS
     Dosage: 5 MG/ 325 mg
     Route: 048
     Dates: start: 2009
  10. PLAVIX [Concomitant]
     Indication: THROMBOSIS
     Dosage: 5 MG/ 325 mg
     Route: 048
     Dates: start: 2009
  11. SIMVASTATIN [Concomitant]
     Indication: BLOOD CHOLESTEROL
     Dosage: 5 MG/ 325 mg
     Route: 048
     Dates: start: 2009
  12. PLETAL [Concomitant]
     Indication: INTERMITTENT CLAUDICATION
     Dosage: 5 MG/ 325 mg
     Route: 048
     Dates: start: 201210

REACTIONS (7)
  - Suture rupture [Recovered/Resolved]
  - Vascular occlusion [Recovered/Resolved]
  - Infection [Recovered/Resolved]
  - Carotid artery occlusion [Recovered/Resolved]
  - Gait disturbance [Recovered/Resolved]
  - Breakthrough pain [Recovered/Resolved]
  - Product adhesion issue [Unknown]
